FAERS Safety Report 14177982 (Version 2)
Quarter: 2018Q1

REPORT INFORMATION
  Report Type: Spontaneous
  Country: US (occurrence: US)
  Receive Date: 20171110
  Receipt Date: 20180131
  Transmission Date: 20180508
  Serious: Yes (Other)
  Sender: FDA-Public Use
  Company Number: US-ASTRAZENECA-2017SF13089

PATIENT
  Age: 21580 Day
  Sex: Female

DRUGS (2)
  1. SYMBICORT [Suspect]
     Active Substance: BUDESONIDE\FORMOTEROL FUMARATE DIHYDRATE
     Indication: CHRONIC OBSTRUCTIVE PULMONARY DISEASE
     Dosage: 160/4.5 UG, UNKNOWN UNKNOWN
     Route: 055
     Dates: start: 201710
  2. SYMBICORT [Suspect]
     Active Substance: BUDESONIDE\FORMOTEROL FUMARATE DIHYDRATE
     Indication: CHRONIC OBSTRUCTIVE PULMONARY DISEASE
     Dosage: 160/4.5 UG, UNKNOWN UNKNOWN
     Route: 055

REACTIONS (4)
  - Neoplasm malignant [Unknown]
  - Memory impairment [Not Recovered/Not Resolved]
  - Neoplasm [Unknown]
  - Product quality issue [Unknown]

NARRATIVE: CASE EVENT DATE: 20171101
